FAERS Safety Report 20824655 (Version 3)
Quarter: 2022Q3

REPORT INFORMATION
  Report Type: Report from Study
  Country: CN (occurrence: CN)
  Receive Date: 20220513
  Receipt Date: 20220714
  Transmission Date: 20221027
  Serious: Yes (Hospitalization)
  Sender: FDA-Public Use
  Company Number: CN-HBP-2022CN026465

PATIENT

DRUGS (8)
  1. INFIGRATINIB [Suspect]
     Active Substance: INFIGRATINIB
     Indication: Gastric cancer
     Dosage: 125 MILLIGRAM, QD
     Route: 048
     Dates: start: 20220415, end: 20220505
  2. TRAMADOL HYDROCHLORIDE [Concomitant]
     Active Substance: TRAMADOL HYDROCHLORIDE
     Indication: Pain
     Dosage: 100 MILLIGRAM, BID
     Dates: start: 20220419
  3. SODIUM POTASSIUM MAGNESIUM CALCIUM AND GLUCOSE [Concomitant]
     Indication: Fluid replacement
     Dosage: 500 MILLILITER, QD
     Dates: start: 20220501, end: 20220502
  4. PANTOPRAZOLE SODIUM [Concomitant]
     Active Substance: PANTOPRAZOLE SODIUM
     Indication: Prophylaxis
     Dosage: 40 MILLIGRAM, QD
     Dates: start: 20220501, end: 20220502
  5. POTASSIUM CHLORIDE [Concomitant]
     Active Substance: POTASSIUM CHLORIDE
     Indication: Fluid replacement
     Dosage: 10 MILLILITER, QD
     Dates: start: 20220501, end: 20220502
  6. VITAMIN B6 [Concomitant]
     Active Substance: PYRIDOXINE HYDROCHLORIDE
     Indication: Fluid replacement
     Dosage: 500 MILLILITER, QD
     Dates: start: 20220501, end: 20220502
  7. VITAMIN C [Concomitant]
     Active Substance: ASCORBIC ACID
     Indication: Fluid replacement
     Dosage: 500 MILLILITER, QD
     Dates: start: 20220501, end: 20220502
  8. HYDROTALCITE [Concomitant]
     Active Substance: HYDROTALCITE
     Indication: Prophylaxis
     Dosage: 1 TABLET, TID
     Dates: start: 20220501, end: 20220503

REACTIONS (1)
  - Vomiting [Recovered/Resolved]

NARRATIVE: CASE EVENT DATE: 20220505
